FAERS Safety Report 7687875-8 (Version None)
Quarter: 2011Q3

REPORT INFORMATION
  Report Type: 
  Country: None (occurrence: None)
  Receive Date: 20110817
  Receipt Date: 20110810
  Transmission Date: 20111222
  Serious: Yes (Death, Other)
  Sender: FDA-Public Use
  Company Number: US-CELGENEUS-163-21880-11062000

PATIENT
  Sex: Female

DRUGS (15)
  1. HYDROCODONE/SOL APAP [Concomitant]
     Route: 065
  2. VITAMIN K1 [Concomitant]
     Dosage: 1MG/0.5
     Route: 065
  3. COUMADIN [Concomitant]
     Dosage: 1 MILLIGRAM
     Route: 048
  4. MARINOL [Concomitant]
     Dosage: 2.5 MILLIGRAM
     Route: 048
  5. ZOFRAN [Concomitant]
     Dosage: 24 MILLIGRAM
     Route: 048
  6. TRANSFUSION [Concomitant]
     Route: 041
  7. CLARITIN [Concomitant]
     Dosage: 10 MILLIGRAM
     Route: 048
  8. CARTIA XT [Concomitant]
     Dosage: 120
     Route: 048
  9. REVLIMID [Suspect]
     Indication: MULTIPLE MYELOMA
     Dosage: 5 MILLIGRAM
     Route: 048
     Dates: start: 20100701, end: 20110601
  10. FOSAMAX [Concomitant]
     Dosage: 70 MILLIGRAM
     Route: 048
  11. PROCHLORPERAZINE [Concomitant]
     Dosage: 10 MILLIGRAM
     Route: 048
  12. PRESSORS [Concomitant]
     Route: 065
  13. LORATADINE [Concomitant]
     Route: 048
  14. MEGACE [Concomitant]
     Dosage: 40 MILLIGRAM/MILLILITERS
     Route: 048
  15. RENAL [Concomitant]
     Route: 048

REACTIONS (2)
  - DEVICE RELATED SEPSIS [None]
  - RENAL FAILURE [None]
